FAERS Safety Report 10684443 (Version 1)
Quarter: 2014Q4

REPORT INFORMATION
  Report Type: Spontaneous
  Country: US (occurrence: US)
  Receive Date: 20141231
  Receipt Date: 20141231
  Transmission Date: 20150529
  Serious: No
  Sender: FDA-Public Use
  Company Number: US-009507513-1412USA008786

PATIENT
  Age: 68 Year
  Sex: Male

DRUGS (15)
  1. SUTENT [Concomitant]
     Active Substance: SUNITINIB MALATE
     Dosage: 50MG, 28 DAY SUPPLY, 1 CAP BY MOUTH, 4 WEEKS ON 2 WEEKS OFF
     Route: 048
  2. DECADRON [Concomitant]
     Active Substance: DEXAMETHASONE
     Dosage: TAKE 1 TAB BY MOUTH EVERY 6 HOURS FOR 30 DAYS
     Route: 048
  3. PERCOCET [Concomitant]
     Active Substance: ACETAMINOPHEN\OXYCODONE HYDROCHLORIDE
     Indication: PAIN
     Dosage: 5-325 MG TABLET, TAKE 1 TAB BY MOUTH EVERY 4 HOURS AS NEEDED FOR PAIN, MODERATE
     Route: 048
  4. PRAVACHOL [Concomitant]
     Active Substance: PRAVASTATIN SODIUM
     Dosage: TAKE 1 TAB BY MOUTH DAILY LATE
     Route: 048
  5. FLUCONAZOLE. [Concomitant]
     Active Substance: FLUCONAZOLE
     Dosage: 100 MG, QD
     Route: 048
  6. MIRALAX [Concomitant]
     Active Substance: POLYETHYLENE GLYCOL 3350
     Indication: CONSTIPATION
     Dosage: TAKE 1 PACKET BY MOUTH DAILY AS NEEDED FOR CONSTIPATION FOR UP TO 30 DAYS
     Route: 048
  7. COLACE [Concomitant]
     Active Substance: DOCUSATE SODIUM
     Dosage: TAKE 1 CAP BY MOUTH 2 TIMES DAILY FOR 30 DAYS
     Route: 048
  8. LOPRESSOR [Concomitant]
     Active Substance: METOPROLOL TARTRATE
     Dosage: TAKE 25 MG BY MOUTH 2 TIMES DAILY, TWO PILLS BID
     Route: 048
  9. COUMADIN [Concomitant]
     Active Substance: WARFARIN SODIUM
  10. PANTOPRAZOLE [Concomitant]
     Active Substance: PANTOPRAZOLE SODIUM
     Dosage: 40 MG, QD
     Route: 048
  11. NORCO [Concomitant]
     Active Substance: ACETAMINOPHEN\HYDROCODONE BITARTRATE
     Indication: PAIN
     Dosage: 5-325 MG TABLET, TAKE 1 TAB BY MOUTH 1 TIME DAILY AS NEEDED FOR PAIN
     Route: 048
  12. LOPRESSOR [Concomitant]
     Active Substance: METOPROLOL TARTRATE
     Dosage: TAKE 12.5 MG BY MOUTH 2 TIMES DAILY
     Route: 048
  13. LISINOPRIL. [Suspect]
     Active Substance: LISINOPRIL
     Dosage: UNK
     Route: 048
  14. RESTORIL (TEMAZEPAM) [Concomitant]
     Indication: INSOMNIA
     Dosage: TAKE 1 CAP BY MOUTH NIGHTLY AS NEEDED FOR INSOMNIA FOR UP TO 30 DOSES
     Route: 048
  15. KEPPRA [Concomitant]
     Active Substance: LEVETIRACETAM
     Dosage: TAKE 1 TAB BY MOUTH 2 TIMES DAILY FOR 30 DAYS.
     Route: 048

REACTIONS (1)
  - Cough [Unknown]

NARRATIVE: CASE EVENT DATE: 20100717
